FAERS Safety Report 9315408 (Version 1)
Quarter: 2013Q2

REPORT INFORMATION
  Report Type: Spontaneous
  Country: GB (occurrence: GB)
  Receive Date: 20130529
  Receipt Date: 20130529
  Transmission Date: 20140414
  Serious: Yes (Death)
  Sender: FDA-Public Use
  Company Number: GB-ABBOTT-13P-167-1095983-00

PATIENT
  Age: 21 Year
  Sex: Female

DRUGS (6)
  1. HUMIRA [Suspect]
     Indication: CROHN^S DISEASE
     Route: 058
     Dates: start: 201210, end: 20121226
  2. MICROGYNON [Suspect]
     Indication: MENSTRUAL CYCLE MANAGEMENT
     Dosage: NO BREAK
     Route: 048
     Dates: start: 2012, end: 201212
  3. MICROGYNON [Suspect]
     Indication: ANAEMIA
  4. MICROGYNON [Suspect]
     Indication: CROHN^S DISEASE
  5. MICROGYNON [Suspect]
     Indication: PROPHYLAXIS
  6. PREDNISOLONE [Concomitant]
     Indication: PRODUCT USED FOR UNKNOWN INDICATION
     Route: 048
     Dates: end: 201211

REACTIONS (1)
  - Intracranial venous sinus thrombosis [Fatal]
